FAERS Safety Report 6753698-7 (Version None)
Quarter: 2010Q2

REPORT INFORMATION
  Report Type: 
  Country: None (occurrence: None)
  Receive Date: 20100603
  Receipt Date: 20100528
  Transmission Date: 20101027
  Serious: Yes (Hospitalization)
  Sender: FDA-Public Use
  Company Number: FR-WYE-G06194210

PATIENT
  Sex: Female

DRUGS (8)
  1. EFFEXOR XR [Suspect]
     Indication: DEPRESSION
     Route: 048
     Dates: start: 20091017, end: 20091113
  2. NEBIVOLOL HYDROCHLORIDE [Suspect]
     Route: 048
     Dates: end: 20091017
  3. NEXIUM [Suspect]
     Route: 048
     Dates: start: 20091017
  4. SOLUPRED [Suspect]
     Route: 048
     Dates: end: 20091017
  5. XANAX [Suspect]
     Route: 048
     Dates: start: 20091017
  6. BI-PROFENID [Suspect]
     Route: 048
     Dates: start: 20091017, end: 20091109
  7. PROZAC [Suspect]
     Route: 048
     Dates: end: 20091017
  8. INIPOMP [Suspect]
     Route: 048
     Dates: end: 20091017

REACTIONS (2)
  - ACCOMMODATION DISORDER [None]
  - CONDITION AGGRAVATED [None]
